FAERS Safety Report 5800956-6 (Version None)
Quarter: 2008Q3

REPORT INFORMATION
  Report Type: 
  Country: None (occurrence: None)
  Receive Date: 20080703
  Receipt Date: 20080627
  Transmission Date: 20090109
  Serious: Yes (Life-Threatening, Other)
  Sender: FDA-Public Use
  Company Number: JP-BOEHRINGER INGELHEIM GMBH, GERMANY-2008-BP-09994RO

PATIENT
  Age: 57 Year
  Sex: Male

DRUGS (14)
  1. LITHIUM CARBONATE [Suspect]
     Indication: BIPOLAR I DISORDER
  2. LITHIUM CARBONATE [Suspect]
  3. CHLORPROMAZINE [Suspect]
     Indication: BIPOLAR I DISORDER
  4. CARBAMAZEPINE [Suspect]
     Indication: BIPOLAR I DISORDER
  5. ZOTEPINE [Suspect]
     Indication: BIPOLAR I DISORDER
  6. PROMETHAZINE [Suspect]
     Indication: BIPOLAR I DISORDER
  7. NITRAZEPAM [Suspect]
     Indication: BIPOLAR I DISORDER
  8. PHENOBARBITURATE [Suspect]
     Indication: BIPOLAR I DISORDER
  9. EPINEPHRINE [Concomitant]
     Indication: CARDIOVERSION
  10. ATROPINE SULFATE [Concomitant]
     Indication: CARDIOVERSION
  11. VALPROATE SODIUM [Concomitant]
     Indication: DEPRESSION
  12. LEVOMEPROMAZINE [Concomitant]
     Indication: DEPRESSION
  13. HALOPERIDOL [Concomitant]
  14. PIPERIDINE CHLORIDE [Concomitant]

REACTIONS (11)
  - ADAMS-STOKES SYNDROME [None]
  - ATRIOVENTRICULAR BLOCK COMPLETE [None]
  - ATRIOVENTRICULAR BLOCK FIRST DEGREE [None]
  - CARDIO-RESPIRATORY ARREST [None]
  - DEPRESSED MOOD [None]
  - FATIGUE [None]
  - HYPOXIA [None]
  - LIVER DISORDER [None]
  - PSYCHOTIC DISORDER [None]
  - RENAL IMPAIRMENT [None]
  - SINUS BRADYCARDIA [None]
